FAERS Safety Report 13988244 (Version 5)
Quarter: 2018Q2

REPORT INFORMATION
  Report Type: Spontaneous
  Country: US (occurrence: US)
  Receive Date: 20170919
  Receipt Date: 20180417
  Transmission Date: 20180711
  Serious: No
  Sender: FDA-Public Use
  Company Number: US-INCYTE CORPORATION-2017IN007663

PATIENT

DRUGS (2)
  1. JAKAFI [Suspect]
     Active Substance: RUXOLITINIB
     Indication: MYELOFIBROSIS
     Dosage: 25 MG, BID
     Route: 048
  2. TYLENOL [Concomitant]
     Active Substance: ACETAMINOPHEN
     Indication: PRODUCT USED FOR UNKNOWN INDICATION
     Route: 065

REACTIONS (10)
  - Influenza [Unknown]
  - Pain [Unknown]
  - Dizziness [Unknown]
  - Peripheral swelling [Unknown]
  - Night sweats [Unknown]
  - Abdominal pain [Unknown]
  - Splenomegaly [Unknown]
  - Fatigue [Unknown]
  - Somnolence [Unknown]
  - Urinary incontinence [Unknown]
